FAERS Safety Report 16471594 (Version 1)
Quarter: 2019Q2

REPORT INFORMATION
  Report Type: Spontaneous
  Country: GB (occurrence: GB)
  Receive Date: 20190624
  Receipt Date: 20190624
  Transmission Date: 20190711
  Serious: Yes (Hospitalization)
  Sender: FDA-Public Use
  Company Number: GB-TEVA-2019-GB-1067417

PATIENT
  Age: 74 Year
  Sex: Male

DRUGS (9)
  1. OMEPRAZOLE. [Suspect]
     Active Substance: OMEPRAZOLE
     Route: 048
     Dates: end: 20190507
  2. ATORVASTATIN [Concomitant]
     Active Substance: ATORVASTATIN
  3. DONEPEZIL. [Suspect]
     Active Substance: DONEPEZIL
     Indication: DEMENTIA ALZHEIMER^S TYPE
     Dosage: BEDTIME. INCREASED FROM 5MG. DECREASED BACK TO 5MG ON 06/05/2019
     Route: 048
     Dates: end: 20190506
  4. BISOPROLOL [Concomitant]
     Active Substance: BISOPROLOL
  5. ACETYLSALICYLIC ACID [Concomitant]
     Active Substance: ASPIRIN
  6. ISPAGHULA EXTRACT\PSYLLIUM [Concomitant]
     Active Substance: HERBALS\PLANTAGO OVATA SEED\PLANTAGO SEED
  7. PERINDOPRIL [Concomitant]
     Active Substance: PERINDOPRIL
  8. DONEPEZIL. [Suspect]
     Active Substance: DONEPEZIL
     Dosage: AT BEDTIME
     Route: 048
  9. NICORANDIL [Concomitant]
     Active Substance: NICORANDIL

REACTIONS (4)
  - Inappropriate antidiuretic hormone secretion [Unknown]
  - Confusional state [Unknown]
  - Muscle contractions involuntary [Unknown]
  - Hyponatraemia [Unknown]
